FAERS Safety Report 10567957 (Version 1)
Quarter: 2014Q4

REPORT INFORMATION
  Report Type: Spontaneous
  Country: US (occurrence: None)
  Receive Date: 20141105
  Receipt Date: 20141105
  Transmission Date: 20150529
  Serious: Yes (Other)
  Sender: FDA-Public Use
  Company Number: None

PATIENT
  Age: 67 Year
  Sex: Female
  Weight: 113.4 kg

DRUGS (1)
  1. NAPROXEN 500 MG AMNEAL PHARMACEUTICALS [Suspect]
     Active Substance: NAPROXEN
     Indication: JOINT INJURY
     Dosage: TAKEN BY MOUTH
     Dates: start: 20141021, end: 20141101

REACTIONS (3)
  - Tendonitis [None]
  - Asthenia [None]
  - Pain [None]

NARRATIVE: CASE EVENT DATE: 20141021
